FAERS Safety Report 22065439 (Version 2)
Quarter: 2023Q1

REPORT INFORMATION
  Report Type: Report from Study
  Country: US (occurrence: US)
  Receive Date: 20230306
  Receipt Date: 20230328
  Transmission Date: 20230418
  Serious: Yes (Other)
  Sender: FDA-Public Use
  Company Number: US-TAKEDA-2023TUS013440

PATIENT
  Sex: Male
  Weight: 99.773 kg

DRUGS (4)
  1. MOBOCERTINIB [Suspect]
     Active Substance: MOBOCERTINIB
     Indication: Lung neoplasm malignant
     Dosage: 160 MILLIGRAM, QD
     Route: 048
     Dates: start: 20230203
  2. MOBOCERTINIB [Suspect]
     Active Substance: MOBOCERTINIB
     Indication: Metastases to central nervous system
  3. MOBOCERTINIB [Suspect]
     Active Substance: MOBOCERTINIB
     Indication: Non-small cell lung cancer
  4. FLECAINIDE [Concomitant]
     Active Substance: FLECAINIDE
     Dosage: UNK, BID
     Route: 065

REACTIONS (12)
  - Hypothyroidism [Unknown]
  - Thyroid disorder [Unknown]
  - Liver disorder [Unknown]
  - Hyperhidrosis [Recovered/Resolved]
  - Body temperature increased [Recovered/Resolved]
  - Nasopharyngitis [Unknown]
  - Feeling cold [Unknown]
  - Blood pressure increased [Unknown]
  - Asthenia [Unknown]
  - Diarrhoea [Unknown]
  - Decreased appetite [Unknown]
  - Off label use [Unknown]
